FAERS Safety Report 8578866-3 (Version None)
Quarter: 2012Q3

REPORT INFORMATION
  Report Type: 
  Country: None (occurrence: None)
  Receive Date: 20120808
  Receipt Date: 20120730
  Transmission Date: 20120928
  Serious: Yes (Disabling)
  Sender: FDA-Public Use
  Company Number: IT-ASTRAZENECA-2012SE48427

PATIENT
  Age: 25913 Day
  Sex: Female

DRUGS (16)
  1. RAMIPRIL [Concomitant]
     Route: 048
  2. RAMIPRIL [Concomitant]
     Route: 048
     Dates: start: 20120704
  3. RAMIPRIL [Concomitant]
     Route: 048
     Dates: start: 20120706
  4. ASPIRIN [Suspect]
     Indication: ACUTE MYOCARDIAL INFARCTION
     Dosage: 500 MG/2.5 ML POWDER AND SOLVENT FOR SOLUTION FOR INJECTION 250MG
     Route: 042
     Dates: start: 20120703, end: 20120703
  5. TRAMADOL HYDROCHLORIDE [Concomitant]
     Route: 048
     Dates: start: 20120703, end: 20120703
  6. MORFINA [Concomitant]
     Route: 058
     Dates: start: 20120703, end: 20120703
  7. BRILINTA [Suspect]
     Indication: ACUTE MYOCARDIAL INFARCTION
     Route: 048
     Dates: start: 20120703, end: 20120703
  8. RAMIPRIL [Concomitant]
     Route: 048
     Dates: start: 20120705
  9. DIAZEPAM [Concomitant]
     Route: 048
     Dates: start: 20120703, end: 20120712
  10. HEPARIN SODIUM [Suspect]
     Indication: ACUTE MYOCARDIAL INFARCTION
     Dosage: 25000 IU SOLUTION FOR INJECTION 5000 IU
     Route: 042
     Dates: start: 20120703, end: 20120703
  11. FUROSEMIDE [Concomitant]
     Indication: ACUTE MYOCARDIAL INFARCTION
     Route: 042
     Dates: start: 20120703, end: 20120704
  12. PANTOPRAZOLE [Concomitant]
     Route: 048
     Dates: start: 20120703, end: 20120712
  13. RAMIPRIL [Concomitant]
     Route: 048
     Dates: start: 20120707
  14. NITROGLICERINA [Concomitant]
     Indication: ACUTE MYOCARDIAL INFARCTION
     Route: 042
     Dates: start: 20120703, end: 20120704
  15. PARACETAMOLO [Concomitant]
     Route: 042
     Dates: start: 20120703, end: 20120704
  16. ATORVASTATIN CALCIUM [Concomitant]
     Indication: ACUTE MYOCARDIAL INFARCTION
     Route: 048
     Dates: start: 20120703

REACTIONS (5)
  - AREFLEXIA [None]
  - SUBDURAL HAEMORRHAGE [None]
  - HYPOAESTHESIA [None]
  - PARALYSIS FLACCID [None]
  - SUBDURAL HAEMATOMA [None]
